FAERS Safety Report 5117268-9 (Version None)
Quarter: 2006Q3

REPORT INFORMATION
  Report Type: 
  Country: None (occurrence: None)
  Receive Date: 20060926
  Receipt Date: 20060911
  Transmission Date: 20061208
  Serious: Yes (Death, Life-Threatening)
  Sender: FDA-Public Use
  Company Number: 069

PATIENT
  Sex: Male

DRUGS (1)
  1. FAZACLO ODT [Suspect]
     Indication: SCHIZOPHRENIA
     Dosage: 700 MG PO DAILY
     Dates: start: 20051221, end: 20060809

REACTIONS (3)
  - LUNG NEOPLASM MALIGNANT [None]
  - METASTASIS [None]
  - MULTI-ORGAN DISORDER [None]
